FAERS Safety Report 25392609 (Version 2)
Quarter: 2025Q2

REPORT INFORMATION
  Report Type: Report from Study
  Country: CA (occurrence: CA)
  Receive Date: 20250603
  Receipt Date: 20250620
  Transmission Date: 20250716
  Serious: Yes (Other)
  Sender: ALEXION PHARMACEUTICALS
  Company Number: CA-AstraZeneca-CH-00881494A

PATIENT
  Age: 41 Year

DRUGS (6)
  1. ACALABRUTINIB [Suspect]
     Active Substance: ACALABRUTINIB
     Indication: Chronic lymphocytic leukaemia
     Dosage: 200 MILLIGRAM, Q12H
  2. PREGABALIN [Concomitant]
     Active Substance: PREGABALIN
  3. SERTRALINE [Concomitant]
     Active Substance: SERTRALINE HYDROCHLORIDE
  4. ESTRADIOL [Concomitant]
     Active Substance: ESTRADIOL
  5. PROGESTERONE [Concomitant]
     Active Substance: PROGESTERONE
  6. LORATADINE [Concomitant]
     Active Substance: LORATADINE

REACTIONS (1)
  - Malignant neoplasm progression [Not Recovered/Not Resolved]
